FAERS Safety Report 21892364 (Version 1)
Quarter: 2023Q1

REPORT INFORMATION
  Report Type: Spontaneous
  Country: US (occurrence: None)
  Receive Date: 20230120
  Receipt Date: 20230120
  Transmission Date: 20230417
  Serious: No
  Sender: FDA-Public Use
  Company Number: None

PATIENT
  Age: 66 Year
  Sex: Female
  Weight: 71.55 kg

DRUGS (5)
  1. OMEPRAZOLE [Suspect]
     Active Substance: OMEPRAZOLE
     Indication: Gastrooesophageal reflux disease
     Dosage: OTHER QUANTITY : 1 CAPSULE(S);?FREQUENCY : DAILY;?
     Route: 048
  2. ONDANSETRON HCL [Concomitant]
     Active Substance: ONDANSETRON HYDROCHLORIDE
  3. ZOLPIDEM TARTRATE [Concomitant]
     Active Substance: ZOLPIDEM TARTRATE
  4. PROMETHAZINE [Concomitant]
     Active Substance: PROMETHAZINE HYDROCHLORIDE
  5. BENZONATATE [Concomitant]
     Active Substance: BENZONATATE

REACTIONS (11)
  - Inappropriate schedule of product administration [None]
  - Depression [None]
  - Anxiety [None]
  - Palpitations [None]
  - Headache [None]
  - Anger [None]
  - Asthenia [None]
  - Dizziness [None]
  - Flatulence [None]
  - Vision blurred [None]
  - Product complaint [None]

NARRATIVE: CASE EVENT DATE: 20230103
